FAERS Safety Report 11297128 (Version 1)
Quarter: 2015Q3

REPORT INFORMATION
  Report Type: Spontaneous
  Country: US (occurrence: US)
  Receive Date: 20150722
  Receipt Date: 20150722
  Transmission Date: 20151125
  Serious: No
  Sender: FDA-Public Use
  Company Number: US-ELI_LILLY_AND_COMPANY-US201101001661

PATIENT
  Sex: Female

DRUGS (5)
  1. EFFIENT [Suspect]
     Active Substance: PRASUGREL HYDROCHLORIDE
     Indication: STENT PLACEMENT
     Dosage: 10 MG, DAILY (1/D)
  2. EFFIENT [Suspect]
     Active Substance: PRASUGREL HYDROCHLORIDE
     Dosage: 5 MG, EVERY 12 HOURS
  3. ASPIRIN. [Concomitant]
     Active Substance: ASPIRIN
     Dosage: 81 MG, SPLIT IN HALF
  4. CEFDINIR. [Concomitant]
     Active Substance: CEFDINIR
     Dosage: 300 MG, 2/D
  5. ASPIRIN. [Concomitant]
     Active Substance: ASPIRIN
     Dosage: 40.5 MG, DAILY (1/D)

REACTIONS (17)
  - Headache [Unknown]
  - Influenza [Unknown]
  - Insomnia [Unknown]
  - Somnolence [Unknown]
  - Dizziness [Unknown]
  - Mouth haemorrhage [Recovered/Resolved]
  - Chest discomfort [Unknown]
  - Pharyngitis streptococcal [Unknown]
  - Fatigue [Unknown]
  - Feeling abnormal [Unknown]
  - Ligament sprain [Not Recovered/Not Resolved]
  - Feeling cold [Unknown]
  - Memory impairment [Unknown]
  - Fall [Recovered/Resolved]
  - Joint injury [Not Recovered/Not Resolved]
  - Excessive cerumen production [Unknown]
  - Sinusitis [Unknown]
